FAERS Safety Report 26044975 (Version 1)
Quarter: 2025Q4

REPORT INFORMATION
  Report Type: Spontaneous
  Country: PK (occurrence: PK)
  Receive Date: 20251114
  Receipt Date: 20251114
  Transmission Date: 20260117
  Serious: Yes (Life-Threatening, Hospitalization)
  Sender: ACCORD
  Company Number: PK-Accord-512340

PATIENT
  Age: 31 Year
  Sex: Female

DRUGS (1)
  1. AMLODIPINE [Suspect]
     Active Substance: AMLODIPINE BESYLATE
     Route: 048

REACTIONS (3)
  - Hypotension [Recovering/Resolving]
  - Non-cardiogenic pulmonary oedema [Recovering/Resolving]
  - Intentional overdose [Unknown]
